FAERS Safety Report 9321500 (Version 1)
Quarter: 2013Q2

REPORT INFORMATION
  Report Type: Spontaneous
  Country: US (occurrence: US)
  Receive Date: 20130531
  Receipt Date: 20130531
  Transmission Date: 20140414
  Serious: No
  Sender: FDA-Public Use
  Company Number: US-FOUGERA-2013FO000076

PATIENT
  Age: 77 Year
  Sex: Female
  Weight: 61.29 kg

DRUGS (2)
  1. HYDROCORTISONE [Suspect]
     Indication: PRURITUS
     Route: 061
     Dates: start: 201303, end: 20130320
  2. HYDROCORTISONE [Suspect]
     Indication: DRY SKIN

REACTIONS (2)
  - Application site erythema [Recovered/Resolved]
  - Drug ineffective [Unknown]
